FAERS Safety Report 13508590 (Version 1)
Quarter: 2017Q2

REPORT INFORMATION
  Report Type: Spontaneous
  Country: US (occurrence: US)
  Receive Date: 20170503
  Receipt Date: 20170503
  Transmission Date: 20170830
  Serious: No
  Sender: FDA-Public Use
  Company Number: US-GLAXOSMITHKLINE-US2017GSK063081

PATIENT
  Sex: Female
  Weight: 123.81 kg

DRUGS (14)
  1. BUPROPION SR PROLONGED-RELEASE TABLET [Suspect]
     Active Substance: BUPROPION
     Indication: DEPRESSION
     Dosage: 100 MG, QD
     Route: 048
     Dates: start: 20170124
  2. PROAIR HFA [Concomitant]
     Active Substance: ALBUTEROL SULFATE
     Dosage: 2 PUFF(S), PRN
     Dates: start: 20170407
  3. MAGNESIUM [Concomitant]
     Active Substance: MAGNESIUM
     Dosage: 500 MG, QD
  4. VITAMIN B12 [Concomitant]
     Active Substance: CYANOCOBALAMIN
     Dosage: 1000 UG, QD
     Route: 048
     Dates: start: 20170407
  5. CELEBREX [Concomitant]
     Active Substance: CELECOXIB
     Dosage: 200 MG, BID
     Route: 048
     Dates: start: 20160916
  6. SERTRALINE [Concomitant]
     Active Substance: SERTRALINE HYDROCHLORIDE
     Dosage: 100 MG, QD
     Route: 048
     Dates: start: 20160725
  7. BUPROPION SR PROLONGED-RELEASE TABLET [Suspect]
     Active Substance: BUPROPION
     Indication: ANXIETY
     Dosage: 150 MG, UNK
  8. CYCLOBENZAPRINE. [Concomitant]
     Active Substance: CYCLOBENZAPRINE
     Dosage: 10 MG, QD
     Route: 048
     Dates: start: 20161213
  9. ESTRADIOL. [Concomitant]
     Active Substance: ESTRADIOL
     Dosage: 1 MG, QD
     Route: 048
     Dates: start: 20160927
  10. FISH OIL [Concomitant]
     Active Substance: FISH OIL
     Dosage: 500 MG, QD
  11. PRAMIPEXOLE. [Concomitant]
     Active Substance: PRAMIPEXOLE
     Dosage: 0.5 MG, UNK
     Dates: start: 20170220
  12. TRAMADOL. [Concomitant]
     Active Substance: TRAMADOL
     Dosage: 50 MG, QD
     Dates: start: 20161213
  13. TRAMADOL. [Concomitant]
     Active Substance: TRAMADOL
     Dosage: 100 MG, QD
     Dates: start: 20161213
  14. GABAPENTIN. [Concomitant]
     Active Substance: GABAPENTIN
     Indication: FIBROMYALGIA
     Dosage: 600 MG, UNK

REACTIONS (6)
  - Musculoskeletal pain [Unknown]
  - Pain [Unknown]
  - Arthralgia [Unknown]
  - Sleep disorder [Unknown]
  - Weight increased [Unknown]
  - Restless legs syndrome [Unknown]
